FAERS Safety Report 6195323-2 (Version None)
Quarter: 2009Q2

REPORT INFORMATION
  Report Type: 
  Country: None (occurrence: None)
  Receive Date: 20090519
  Receipt Date: 20090508
  Transmission Date: 20091009
  Serious: Yes (Death)
  Sender: FDA-Public Use
  Company Number: GB-JNJFOC-20090501993

PATIENT
  Age: 63 Year
  Sex: Male
  Weight: 89 kg

DRUGS (9)
  1. REMICADE [Suspect]
     Indication: RHEUMATOID ARTHRITIS
     Route: 042
  2. ACETAMINOPHEN W/ CODEINE [Concomitant]
  3. METHOTREXATE [Concomitant]
  4. ASPIRIN [Concomitant]
  5. BRUFEN [Concomitant]
  6. CARDURA [Concomitant]
  7. FOLIC ACID [Concomitant]
  8. VITAMIN B COMPLEX CAP [Concomitant]
  9. LANSOPRAZOLE [Concomitant]

REACTIONS (2)
  - CEREBROVASCULAR ACCIDENT [None]
  - LUNG NEOPLASM MALIGNANT [None]
